FAERS Safety Report 4312531-3 (Version None)
Quarter: 2004Q1

REPORT INFORMATION
  Report Type: 
  Country: None (occurrence: None)
  Receive Date: 20040305
  Receipt Date: 20031208
  Transmission Date: 20041129
  Serious: Yes (Life-Threatening, Hospitalization)
  Sender: FDA-Public Use
  Company Number: PHRM2003FR03268

PATIENT
  Age: 79 Year
  Sex: Female
  Weight: 62 kg

DRUGS (2)
  1. COTAREG [Suspect]
     Indication: HYPERTENSION
     Dosage: 1 DF, QD
     Route: 048
     Dates: start: 20031015, end: 20031111
  2. FLECAINE [Suspect]
     Indication: SUPRAVENTRICULAR EXTRASYSTOLES
     Dosage: 100 MG, BID
     Route: 048
     Dates: start: 19950101

REACTIONS (4)
  - CARDIO-RESPIRATORY ARREST [None]
  - HYPOKALAEMIA [None]
  - MYOCARDIAL INFARCTION [None]
  - TORSADE DE POINTES [None]
